FAERS Safety Report 6483180-6 (Version None)
Quarter: 2009Q4

REPORT INFORMATION
  Report Type: 
  Country: None (occurrence: None)
  Receive Date: 20091123
  Receipt Date: 20090810
  Transmission Date: 20100525
  Serious: No
  Sender: FDA-Public Use
  Company Number: 8050236

PATIENT
  Sex: Female
  Weight: 76 kg

DRUGS (1)
  1. CIMZIA [Suspect]
     Indication: CROHN'S DISEASE
     Dosage: 400 MG
     Dates: start: 20090319

REACTIONS (3)
  - ANGIOEDEMA [None]
  - HYPERSOMNIA [None]
  - RASH [None]
